FAERS Safety Report 8814610 (Version 1)
Quarter: 2012Q4

REPORT INFORMATION
  Report Type: Spontaneous
  Country: US (occurrence: None)
  Receive Date: 20120926
  Receipt Date: 20120926
  Transmission Date: 20130627
  Serious: Yes (Hospitalization)
  Sender: FDA-Public Use
  Company Number: FK201202755

PATIENT
  Age: 70 Year
  Sex: Female

DRUGS (2)
  1. METHOTREXATE [Suspect]
     Indication: CENTRAL NERVOUS SYSTEM LYMPHOMA
     Dosage: 3.2 g/m2
  2. LEUCOVORIN (CALCIUM FOLINATE) [Concomitant]

REACTIONS (6)
  - Colonic pseudo-obstruction [None]
  - Proctocolitis [None]
  - Ileus [None]
  - Candida test positive [None]
  - Yersinia test positive [None]
  - Pancytopenia [None]
